FAERS Safety Report 20757882 (Version 1)
Quarter: 2022Q2

REPORT INFORMATION
  Report Type: Spontaneous
  Country: ZA (occurrence: ZA)
  Receive Date: 20220427
  Receipt Date: 20220427
  Transmission Date: 20220720
  Serious: Yes (Other)
  Sender: FDA-Public Use
  Company Number: ZA-PFIZER INC-202200614483

PATIENT
  Age: 66 Year
  Sex: Female
  Weight: 70 kg

DRUGS (4)
  1. METHOTREXATE [Suspect]
     Active Substance: METHOTREXATE
     Indication: Rheumatoid arthritis
     Dosage: 20 MG
     Dates: start: 201206
  2. SULFASALAZINE [Concomitant]
     Active Substance: SULFASALAZINE
     Indication: Rheumatoid arthritis
     Dosage: UNK, 2X/DAY
     Dates: start: 2020
  3. CHLOROQUINE [Concomitant]
     Active Substance: CHLOROQUINE
     Indication: Rheumatoid arthritis
     Dosage: UNK, (5 DAYS WEEK)
     Dates: start: 2012
  4. CHLOROQUINE SULFATE [Concomitant]
     Active Substance: CHLOROQUINE SULFATE
     Indication: Rheumatoid arthritis
     Dosage: UNK, (3 A WEEK)

REACTIONS (4)
  - Malignant melanoma [Unknown]
  - Drug ineffective [Unknown]
  - Joint swelling [Unknown]
  - Malaise [Unknown]

NARRATIVE: CASE EVENT DATE: 20210101
